FAERS Safety Report 10048441 (Version 3)
Quarter: 2014Q3

REPORT INFORMATION
  Report Type: Report from Study
  Country: CH (occurrence: CH)
  Receive Date: 20140331
  Receipt Date: 20140704
  Transmission Date: 20150326
  Serious: Yes (Hospitalization)
  Sender: FDA-Public Use
  Company Number: CH-MERCK-0706USA05252

PATIENT
  Age: 77 Year
  Sex: Female
  Weight: 87 kg

DRUGS (10)
  1. EZETIMIBE AND SIMVASTATIN [Suspect]
     Active Substance: EZETIMIBE\SIMVASTATIN
     Indication: ACUTE CORONARY SYNDROME
     Dosage: 10/40 MG, QD
     Route: 048
     Dates: start: 20070206
  2. ASPIRIN. [Concomitant]
     Active Substance: ASPIRIN
     Dosage: 100 MG DAILY
     Route: 048
     Dates: start: 20060204
  3. PANTOZOL [Concomitant]
     Active Substance: PANTOPRAZOLE SODIUM
     Dosage: 20 MG DAILY
     Route: 048
     Dates: start: 20070205, end: 20070408
  4. ACTOS [Concomitant]
     Active Substance: PIOGLITAZONE HYDROCHLORIDE
     Dosage: 30 MG DAILY
     Route: 048
     Dates: start: 20050101
  5. STILNOX [Concomitant]
     Active Substance: ZOLPIDEM TARTRATE
     Dosage: 10 MG DAILY
     Route: 048
     Dates: start: 20050101
  6. PLAVIX [Concomitant]
     Active Substance: CLOPIDOGREL BISULFATE
     Dosage: 75 MG DAILY
     Route: 048
     Dates: start: 20070204
  7. LASILACTONE [Concomitant]
     Active Substance: FUROSEMIDE\SPIRONOLACTONE
     Dosage: 50 MG DAILY
     Route: 048
     Dates: start: 20050101
  8. BELOC-ZOK [Concomitant]
     Active Substance: METOPROLOL SUCCINATE
     Dosage: 25 MG DAILY
     Route: 048
     Dates: start: 20070210
  9. DIAMICRON [Concomitant]
     Active Substance: GLICLAZIDE
     Dosage: 320 MG DAILY
     Route: 048
     Dates: start: 20050101
  10. ENALAPRIL MALEATE AND HYDROCHLOROTHIAZIDE [Concomitant]
     Active Substance: ENALAPRIL MALEATE\HYDROCHLOROTHIAZIDE
     Dosage: TOTAL DAILY USE 20 MG
     Route: 048
     Dates: start: 20070206, end: 20070408

REACTIONS (2)
  - Gallbladder disorder [Recovered/Resolved]
  - Pancreatitis [None]

NARRATIVE: CASE EVENT DATE: 20070408
